FAERS Safety Report 9233820 (Version 1)
Quarter: 2013Q2

REPORT INFORMATION
  Report Type: Spontaneous
  Country: US (occurrence: US)
  Receive Date: 20130416
  Receipt Date: 20130416
  Transmission Date: 20140414
  Serious: No
  Sender: FDA-Public Use
  Company Number: US-MYLANLABS-2013S1002760

PATIENT
  Age: 84 Year
  Sex: Female

DRUGS (2)
  1. NITROFURANTOIN MONOHYDRATE/MACROCRYSTALS CAPSULES [Suspect]
     Indication: URINARY TRACT INFECTION
     Route: 048
     Dates: start: 20130113, end: 20130116
  2. NITROFURANTOIN MONOHYDRATE/MACROCRYSTALS CAPSULES [Suspect]
     Indication: URINARY TRACT INFECTION
     Route: 048
     Dates: start: 20130126, end: 20130201

REACTIONS (3)
  - Asthenia [Recovered/Resolved]
  - Feeling cold [Not Recovered/Not Resolved]
  - Feeling abnormal [Not Recovered/Not Resolved]
